FAERS Safety Report 19258102 (Version 1)
Quarter: 2021Q2

REPORT INFORMATION
  Report Type: Spontaneous
  Country: US (occurrence: US)
  Receive Date: 20210514
  Receipt Date: 20210514
  Transmission Date: 20210717
  Serious: Yes (Hospitalization)
  Sender: FDA-Public Use
  Company Number: None

PATIENT
  Age: 33 Year
  Sex: Male
  Weight: 75.3 kg

DRUGS (7)
  1. HUMIRA [Suspect]
     Active Substance: ADALIMUMAB
  2. MULTIPLE VITAMIN [Concomitant]
     Active Substance: VITAMINS
  3. CLOBETASOL PROPIONATE 0.05% EX FOAM [Concomitant]
  4. TURMERIC [Concomitant]
     Active Substance: HERBALS\TURMERIC
  5. PROBIOTIC PRODUCT [Concomitant]
  6. OMEGA?3 FATTY ACIDS [Concomitant]
     Active Substance: OMEGA-3 FATTY ACIDS
  7. CHOLECALCIFEROL [Concomitant]
     Active Substance: CHOLECALCIFEROL

REACTIONS (3)
  - Intestinal fistula [None]
  - Small intestinal obstruction [None]
  - Vesical fistula [None]

NARRATIVE: CASE EVENT DATE: 20190827
